FAERS Safety Report 7544367-4 (Version None)
Quarter: 2011Q2

REPORT INFORMATION
  Report Type: 
  Country: None (occurrence: None)
  Receive Date: 20110613
  Receipt Date: 20080730
  Transmission Date: 20111010
  Serious: Yes (Death, Life-Threatening, Hospitalization)
  Sender: FDA-Public Use
  Company Number: PHHY2008JP14039

PATIENT
  Age: 70 Year
  Sex: Male

DRUGS (13)
  1. ZOMETA [Suspect]
     Indication: LUNG ADENOCARCINOMA
     Dosage: 4 MG, UNK
     Route: 042
     Dates: start: 20070618, end: 20070618
  2. MUCODYNE [Concomitant]
     Dosage: 1500 MG, QD
     Route: 048
     Dates: start: 20060327, end: 20070725
  3. BIO THREE [Concomitant]
     Dosage: 3 DF, QD
     Route: 048
     Dates: start: 20070401, end: 20070725
  4. MEDICON [Concomitant]
     Dosage: 45 MG, QD
     Route: 048
     Dates: start: 20060327, end: 20070725
  5. NAVELBINE [Suspect]
     Dosage: 30 MG, UNK
     Route: 042
     Dates: start: 20070619, end: 20070619
  6. LAC B [Concomitant]
     Dosage: 3 G, QD
     Route: 048
     Dates: start: 20070401, end: 20070725
  7. MARZULENE S [Concomitant]
     Dosage: 2 G, QD
     Route: 048
     Dates: start: 20061206, end: 20070725
  8. BISOPROLOL FUMARATE [Concomitant]
     Dosage: 5 MG, QD
     Route: 048
     Dates: start: 20060324, end: 20070725
  9. ASPIRIN [Concomitant]
     Dosage: 100 MG, QD
     Route: 048
     Dates: start: 20060324, end: 20070725
  10. CLARITHROMYCIN [Concomitant]
     Dosage: 400 MG, QD
     Route: 048
     Dates: start: 20060327, end: 20070725
  11. FAMOTIDINE [Concomitant]
     Dosage: 20 MG, QD
     Route: 048
     Dates: start: 20061206, end: 20070725
  12. STARSIS [Concomitant]
     Dosage: 90 MG, QD
     Route: 048
     Dates: start: 20060801, end: 20070725
  13. DEXAMETHASONE SODIUM PHOSPHATE [Concomitant]
     Dosage: 4 MG, QD
     Route: 048
     Dates: start: 20070619, end: 20070619

REACTIONS (5)
  - WHITE BLOOD CELL COUNT DECREASED [None]
  - METASTASES TO CENTRAL NERVOUS SYSTEM [None]
  - ONCOLOGIC COMPLICATION [None]
  - BLOOD UREA INCREASED [None]
  - DEPRESSED LEVEL OF CONSCIOUSNESS [None]
